FAERS Safety Report 9204108 (Version 1)
Quarter: 2013Q2

REPORT INFORMATION
  Report Type: Spontaneous
  Country: US (occurrence: US)
  Receive Date: 20130402
  Receipt Date: 20130402
  Transmission Date: 20140414
  Serious: No
  Sender: FDA-Public Use
  Company Number: US-PFIZER INC-2013104668

PATIENT
  Sex: Male
  Weight: 92.97 kg

DRUGS (8)
  1. LYRICA [Suspect]
     Indication: NEURALGIA
     Dosage: 150 MG, 2X/DAY
     Route: 048
     Dates: start: 2007
  2. LYRICA [Suspect]
     Indication: NEURALGIA
  3. METOPROLOL [Concomitant]
     Indication: CARDIAC DISORDER
     Dosage: 25 MG, 1X/DAY
  4. LISINOPRIL [Concomitant]
     Indication: HYPERTENSION
     Dosage: 10 MG, 2X/DAY
  5. LOVASTATIN [Concomitant]
     Indication: BLOOD CHOLESTEROL INCREASED
     Dosage: 20 MG, 2X/DAY
  6. DICLOFENAC [Concomitant]
     Dosage: 75 MG, 2X/DAY
  7. TIZANIDINE [Concomitant]
     Dosage: 4 MG, 3X/DAY
  8. BABY ASPIRIN [Concomitant]
     Dosage: UNK

REACTIONS (2)
  - Blood testosterone decreased [Unknown]
  - Intentional drug misuse [Unknown]
